FAERS Safety Report 9192445 (Version 2)
Quarter: 2013Q2

REPORT INFORMATION
  Report Type: Spontaneous
  Country: US (occurrence: None)
  Receive Date: 20120703
  Receipt Date: 20121031
  Transmission Date: 20140414
  Serious: Yes (Other)
  Sender: FDA-Public Use
  Company Number: PHEH2012US009397

PATIENT
  Age: 44 Year
  Sex: Female
  Weight: 54.9 kg

DRUGS (3)
  1. GILENYA [Suspect]
     Indication: MULTIPLE SCLEROSIS
     Route: 048
     Dates: start: 20120502
  2. CALCIUM CARBONATE W/VITAMIN D NOS (CALCIUM CARBONATE, VITAMIN D NOS) [Concomitant]
  3. VITAMIN D (ERGOCALCIFEROL) [Concomitant]

REACTIONS (1)
  - Fatigue [None]
